FAERS Safety Report 5618851-4 (Version None)
Quarter: 2008Q1

REPORT INFORMATION
  Report Type: 
  Country: None (occurrence: None)
  Receive Date: 20080207
  Receipt Date: 20080130
  Transmission Date: 20080703
  Serious: Yes (Disabling)
  Sender: FDA-Public Use
  Company Number: CA-PFIZER INC-2007106868

PATIENT
  Age: 85 Year
  Sex: Female
  Weight: 67 kg

DRUGS (3)
  1. AROMASIN [Suspect]
     Indication: BREAST CANCER
     Route: 048
     Dates: start: 20051107, end: 20071121
  2. TEMAZEPAM [Concomitant]
     Dosage: DAILY DOSE:15MG-FREQ:EVERY NIGHT
  3. TRAZODONE HYDROCHLORIDE [Concomitant]
     Dosage: DAILY DOSE:50MG
     Dates: start: 20050507

REACTIONS (1)
  - COGNITIVE DISORDER [None]
